FAERS Safety Report 9580104 (Version 1)
Quarter: 2013Q4

REPORT INFORMATION
  Report Type: Spontaneous
  Country: CA (occurrence: CA)
  Receive Date: 20131002
  Receipt Date: 20131002
  Transmission Date: 20140711
  Serious: Yes (Other)
  Sender: FDA-Public Use
  Company Number: CA-SA-2013SA095206

PATIENT
  Sex: Female

DRUGS (22)
  1. LANTUS [Suspect]
     Indication: PRODUCT USED FOR UNKNOWN INDICATION
     Route: 065
     Dates: end: 2013
  2. DIAMICRON [Suspect]
     Indication: DIABETES MELLITUS
     Route: 065
     Dates: end: 2013
  3. NEXIUM [Suspect]
     Indication: PRODUCT USED FOR UNKNOWN INDICATION
     Route: 065
     Dates: end: 2013
  4. LYRICA [Suspect]
     Indication: PRODUCT USED FOR UNKNOWN INDICATION
     Route: 065
     Dates: end: 2013
  5. DOMPERIDONE [Suspect]
     Indication: PRODUCT USED FOR UNKNOWN INDICATION
     Route: 065
     Dates: end: 2013
  6. RITUXAN [Suspect]
     Indication: SJOGREN^S SYNDROME
     Route: 065
     Dates: start: 20070525
  7. DIPHENHYDRAMINE HYDROCHLORIDE [Concomitant]
  8. ACETAMINOPHEN [Concomitant]
  9. METHYLPREDNISOLONE [Concomitant]
  10. LISINOPRIL [Concomitant]
  11. ATACAND [Concomitant]
  12. NORVASC [Concomitant]
  13. SYNTHROID [Concomitant]
  14. ALTACE [Concomitant]
  15. ELTROXIN [Concomitant]
  16. PREDNISONE [Concomitant]
  17. EZETROL [Concomitant]
  18. CRESTOR [Concomitant]
  19. VITAMIN D [Concomitant]
  20. METHYLPREDNISOLONE ACETATE [Concomitant]
  21. JANUVIA [Concomitant]
  22. APO-HYDRO [Concomitant]

REACTIONS (1)
  - Adverse event [Unknown]
